FAERS Safety Report 8138381-8 (Version None)
Quarter: 2012Q1

REPORT INFORMATION
  Report Type: 
  Country: None (occurrence: None)
  Receive Date: 20120215
  Receipt Date: 20120131
  Transmission Date: 20120608
  Serious: Yes (Other)
  Sender: FDA-Public Use
  Company Number: US-SANOFI-AVENTIS-2012SA007132

PATIENT
  Sex: Male

DRUGS (5)
  1. GLYBURIDE [Suspect]
     Route: 048
  2. LEVEMIR [Suspect]
     Dosage: DOSE:5 UNIT(S)
     Route: 065
  3. LEVEMIR [Suspect]
     Dosage: DOSE:10 UNIT(S)
     Route: 065
  4. JANUVIA [Concomitant]
  5. METFORMIN HCL [Suspect]
     Route: 065

REACTIONS (2)
  - HYPERHIDROSIS [None]
  - HYPOGLYCAEMIA [None]
